FAERS Safety Report 7996730-5 (Version None)
Quarter: 2011Q4

REPORT INFORMATION
  Report Type: 
  Country: None (occurrence: None)
  Receive Date: 20111221
  Receipt Date: 20111206
  Transmission Date: 20120403
  Serious: Yes (Other)
  Sender: FDA-Public Use
  Company Number: FR-UCBSA-046895

PATIENT
  Age: 63 Year
  Sex: Male

DRUGS (3)
  1. VIMPAT [Suspect]
     Indication: EPILEPSY
     Route: 048
     Dates: start: 20090101, end: 20110101
  2. CARBAMAZEPINE [Concomitant]
     Indication: EPILEPSY
     Route: 048
  3. VALPROATE SODIUM [Concomitant]
     Indication: EPILEPSY
     Route: 048

REACTIONS (2)
  - MALAISE [None]
  - ATRIAL FLUTTER [None]
